FAERS Safety Report 23679282 (Version 1)
Quarter: 2024Q1

REPORT INFORMATION
  Report Type: Spontaneous
  Country: US (occurrence: None)
  Receive Date: 20240327
  Receipt Date: 20240327
  Transmission Date: 20240410
  Serious: No
  Sender: FDA-Public Use
  Company Number: None

PATIENT
  Age: 54 Year
  Sex: Male

DRUGS (1)
  1. LENALIDOMIDE [Suspect]
     Active Substance: LENALIDOMIDE
     Indication: Plasma cell myeloma
     Dosage: FREQUENCY : DAILY;?
     Route: 048
     Dates: start: 20240122

REACTIONS (6)
  - Arthralgia [None]
  - Accident at work [None]
  - Hip fracture [None]
  - Deep vein thrombosis [None]
  - Deep vein thrombosis [None]
  - Therapy interrupted [None]

NARRATIVE: CASE EVENT DATE: 20240213
